FAERS Safety Report 6712602-8 (Version None)
Quarter: 2010Q2

REPORT INFORMATION
  Report Type: 
  Country: None (occurrence: None)
  Receive Date: 20100505
  Receipt Date: 20100505
  Transmission Date: 20101027
  Serious: Yes (Hospitalization)
  Sender: FDA-Public Use
  Company Number: None

PATIENT
  Sex: Male
  Weight: 119.7496 kg

DRUGS (2)
  1. ZOMETA [Suspect]
     Indication: METASTASES TO BONE
     Dates: start: 20100330
  2. ZOMETA [Suspect]
     Indication: PROSTATE CANCER METASTATIC
     Dates: start: 20100330

REACTIONS (3)
  - CHEST DISCOMFORT [None]
  - CHILLS [None]
  - PAIN [None]
